FAERS Safety Report 5598013-X (Version None)
Quarter: 2008Q1

REPORT INFORMATION
  Report Type: 
  Country: None (occurrence: None)
  Receive Date: 20080122
  Receipt Date: 20071228
  Transmission Date: 20080703
  Serious: No
  Sender: FDA-Public Use
  Company Number: US-JNJFOC-20071100956

PATIENT
  Sex: Female
  Weight: 99.79 kg

DRUGS (10)
  1. INVEGA [Suspect]
     Indication: PSYCHOTIC DISORDER
     Route: 048
  2. COGENTIN [Concomitant]
     Indication: ADVERSE DRUG REACTION
     Route: 048
  3. ZANTAC [Concomitant]
     Indication: GASTROOESOPHAGEAL REFLUX DISEASE
     Route: 048
  4. ZANTAC [Concomitant]
     Indication: MEDICAL DIET
     Route: 048
  5. HALDOL [Concomitant]
     Indication: PSYCHOTIC DISORDER
     Route: 048
  6. ELAVIL [Concomitant]
     Indication: INSOMNIA
     Route: 048
  7. ELAVIL [Concomitant]
     Indication: ANXIETY
     Route: 048
  8. ELAVIL [Concomitant]
     Indication: DEPRESSION
     Route: 048
  9. PAXIL CR [Concomitant]
     Indication: ANXIETY
     Route: 048
  10. PAXIL CR [Concomitant]
     Indication: DEPRESSION
     Route: 048

REACTIONS (3)
  - BLOOD PROLACTIN INCREASED [None]
  - BREAST TENDERNESS [None]
  - MENSTRUATION IRREGULAR [None]
